FAERS Safety Report 7215989-5 (Version None)
Quarter: 2011Q1

REPORT INFORMATION
  Report Type: 
  Country: None (occurrence: None)
  Receive Date: 20110107
  Receipt Date: 20101224
  Transmission Date: 20110831
  Serious: Yes (Other)
  Sender: FDA-Public Use
  Company Number: PHHY2010IT88171

PATIENT
  Age: 47 Year
  Sex: Male

DRUGS (1)
  1. METFORMIN [Suspect]
     Indication: TYPE 2 DIABETES MELLITUS
     Dosage: UNK

REACTIONS (18)
  - CONFUSIONAL STATE [None]
  - URINE OUTPUT DECREASED [None]
  - CARDIAC ARREST [None]
  - SINUS TACHYCARDIA [None]
  - BLOOD UREA INCREASED [None]
  - AGITATION [None]
  - BLOOD CREATININE INCREASED [None]
  - BLOOD LACTIC ACID INCREASED [None]
  - HYPOGLYCAEMIA [None]
  - RESPIRATORY DISORDER [None]
  - DRUG LEVEL INCREASED [None]
  - BRADYCARDIA [None]
  - BLOOD PRESSURE DECREASED [None]
  - VOMITING [None]
  - BUNDLE BRANCH BLOCK RIGHT [None]
  - RENAL FAILURE [None]
  - METABOLIC ACIDOSIS [None]
  - DIARRHOEA [None]
